FAERS Safety Report 24833856 (Version 4)
Quarter: 2025Q1

REPORT INFORMATION
  Report Type: Spontaneous
  Country: US (occurrence: US)
  Receive Date: 20250112
  Receipt Date: 20250305
  Transmission Date: 20250409
  Serious: No
  Sender: SUNOVION
  Company Number: US-MYOVANT SCIENCES GMBH-2024MYSCI0700246

PATIENT

DRUGS (8)
  1. ORGOVYX [Suspect]
     Active Substance: RELUGOLIX
     Indication: Prostate cancer
     Dosage: TAKE 1 TABLET BY MOUTH ONCE DAILY AROUND THE SAME TIME EACH DAY
     Route: 048
     Dates: start: 20220904
  2. ORGOVYX [Suspect]
     Active Substance: RELUGOLIX
     Dosage: 120 MG, QD
     Route: 048
  3. ORGOVYX [Suspect]
     Active Substance: RELUGOLIX
     Route: 048
  4. METFORMIN [Concomitant]
     Active Substance: METFORMIN HYDROCHLORIDE
     Indication: Diabetes mellitus
     Dosage: 850 MG, BID
     Route: 065
     Dates: start: 19910103
  5. ATORVASTATIN [Concomitant]
     Active Substance: ATORVASTATIN
     Indication: Blood cholesterol
     Dosage: 20 MG, QD
     Route: 048
     Dates: start: 19910103
  6. CALCIUM [Concomitant]
     Active Substance: CALCIUM
     Dosage: 600 MG, QD
     Route: 065
     Dates: start: 20210101
  7. VITAMIN D3 [Concomitant]
     Active Substance: CHOLECALCIFEROL
     Dosage: 2000 IU, QD
     Route: 065
     Dates: start: 20210101
  8. IRON [Concomitant]
     Active Substance: IRON
     Dosage: 350 MG, QD
     Route: 065
     Dates: start: 20240201

REACTIONS (2)
  - Product distribution issue [Unknown]
  - Therapy interrupted [Unknown]
